FAERS Safety Report 7862877-7 (Version None)
Quarter: 2011Q4

REPORT INFORMATION
  Report Type: 
  Country: None (occurrence: None)
  Receive Date: 20111027
  Receipt Date: 20101117
  Transmission Date: 20120403
  Serious: Yes (Hospitalization)
  Sender: FDA-Public Use
  Company Number: US-AMGEN-KDL443463

PATIENT
  Age: 62 Year
  Sex: Male

DRUGS (2)
  1. ENBREL [Suspect]
     Indication: RHEUMATOID ARTHRITIS
     Dosage: 50 UNK, UNK
     Dates: start: 19990101, end: 20100913
  2. ENBREL [Suspect]
     Dates: start: 19990101, end: 20100913

REACTIONS (2)
  - DEVICE RELATED INFECTION [None]
  - RHEUMATOID ARTHRITIS [None]
